FAERS Safety Report 25617416 (Version 1)
Quarter: 2025Q3

REPORT INFORMATION
  Report Type: Spontaneous
  Country: US (occurrence: US)
  Receive Date: 20250729
  Receipt Date: 20250729
  Transmission Date: 20251021
  Serious: No
  Sender: BRISTOL-MYERS SQUIBB COMPANY
  Company Number: US-BRISTOL-MYERS SQUIBB COMPANY-2025-105719

PATIENT
  Age: 53 Year
  Sex: Female
  Weight: 90.72 kg

DRUGS (2)
  1. ELIQUIS [Suspect]
     Active Substance: APIXABAN
     Indication: Deep vein thrombosis
     Route: 048
     Dates: start: 202505
  2. TYLENOL [Concomitant]
     Active Substance: ACETAMINOPHEN
     Indication: Product used for unknown indication

REACTIONS (6)
  - Arthralgia [Not Recovered/Not Resolved]
  - Exercise tolerance decreased [Unknown]
  - Weight increased [Unknown]
  - Peripheral swelling [Unknown]
  - Oedema [Unknown]
  - Pain [Unknown]

NARRATIVE: CASE EVENT DATE: 20250101
